FAERS Safety Report 25974551 (Version 1)
Quarter: 2025Q4

REPORT INFORMATION
  Report Type: Report from Study
  Country: US (occurrence: US)
  Receive Date: 20251029
  Receipt Date: 20251029
  Transmission Date: 20260119
  Serious: Yes (Hospitalization)
  Sender: ABBVIE
  Company Number: US-ABBVIE-6518615

PATIENT
  Age: 19 Year
  Sex: Female

DRUGS (1)
  1. CREON [Suspect]
     Active Substance: PANCRELIPASE AMYLASE\PANCRELIPASE LIPASE\PANCRELIPASE PROTEASE
     Indication: Product used for unknown indication
     Route: 048
     Dates: start: 20090509

REACTIONS (3)
  - Blood pressure abnormal [Recovering/Resolving]
  - Cystic fibrosis [Recovering/Resolving]
  - Pulmonary function test abnormal [Recovering/Resolving]

NARRATIVE: CASE EVENT DATE: 20251001
